FAERS Safety Report 16115454 (Version 2)
Quarter: 2019Q2

REPORT INFORMATION
  Report Type: Spontaneous
  Country: FR (occurrence: FR)
  Receive Date: 20190325
  Receipt Date: 20190517
  Transmission Date: 20190711
  Serious: Yes (Death, Congenital Anomaly)
  Sender: FDA-Public Use
  Company Number: PHHY2019FR064226

PATIENT
  Sex: Male
  Weight: .08 kg

DRUGS (5)
  1. ACICLOVIR [Concomitant]
     Active Substance: ACYCLOVIR
     Indication: HERPES ZOSTER
     Dosage: UNK
     Route: 064
  2. MIFEGYNE [Concomitant]
     Active Substance: MIFEPRISTONE
     Indication: DELIVERY
     Dosage: 3 DF, UNK
     Route: 064
  3. ZYKADIA [Suspect]
     Active Substance: CERITINIB
     Indication: ACCIDENTAL EXPOSURE TO PRODUCT
     Dosage: MATERNAL DOSE:250 MG, QD
     Route: 064
     Dates: start: 20180909
  4. LANTUS [Concomitant]
     Active Substance: INSULIN GLARGINE
     Indication: GESTATIONAL DIABETES
     Dosage: MATERNAL DOSE:3 IU, QD
     Route: 064
  5. MISOPROSTOL. [Concomitant]
     Active Substance: MISOPROSTOL
     Indication: DELIVERY
     Dosage: UNK
     Route: 064

REACTIONS (1)
  - Foetal death [Fatal]

NARRATIVE: CASE EVENT DATE: 20190104
